FAERS Safety Report 5202170-4 (Version None)
Quarter: 2006Q4

REPORT INFORMATION
  Report Type: 
  Country: None (occurrence: None)
  Receive Date: 20061010
  Receipt Date: 20060614
  Transmission Date: 20070319
  Serious: Yes (Death)
  Sender: FDA-Public Use
  Company Number: 2006P1000340

PATIENT
  Age: 58 Year
  Sex: Male
  Weight: 96 kg

DRUGS (7)
  1. RETEPLASE (RETEPLASE) [Suspect]
     Indication: ACUTE MYOCARDIAL INFARCTION
     Dosage: IV
     Route: 042
     Dates: start: 20060606, end: 20060606
  2. ABCIXIMAB (ABCIXIMAB) [Suspect]
     Indication: ACUTE MYOCARDIAL INFARCTION
     Dosage: IV
     Route: 042
     Dates: start: 20060606, end: 20060606
  3. HEPARIN [Concomitant]
  4. CLOPIDOGREL [Concomitant]
  5. MORPHINE [Concomitant]
  6. FUROSEMIDE [Concomitant]
  7. GLYCERYL TRINITRATE [Concomitant]

REACTIONS (1)
  - VENTRICULAR FIBRILLATION [None]
